FAERS Safety Report 8125255-1 (Version None)
Quarter: 2012Q1

REPORT INFORMATION
  Report Type: 
  Country: None (occurrence: None)
  Receive Date: 20120209
  Receipt Date: 20120201
  Transmission Date: 20120608
  Serious: Yes (Other)
  Sender: FDA-Public Use
  Company Number: US-BRISTOL-MYERS SQUIBB COMPANY-16377871

PATIENT
  Age: 43 Year
  Sex: Male
  Weight: 73 kg

DRUGS (2)
  1. IPILIMUMAB [Suspect]
     Indication: MALIGNANT MELANOMA
     Dosage: OVER 90 MIN ON DY 1 LAST ADMINISTERED DT:20OCT11
     Route: 042
     Dates: start: 20110526
  2. LEUKINE [Suspect]
     Indication: MALIGNANT MELANOMA
     Dosage: LAST ADMINISTERED DT:4JAN12
     Route: 058
     Dates: start: 20110526

REACTIONS (1)
  - EYE DISORDER [None]
